FAERS Safety Report 5453992-6 (Version None)
Quarter: 2007Q3

REPORT INFORMATION
  Report Type: 
  Country: None (occurrence: None)
  Receive Date: 20070917
  Receipt Date: 20070910
  Transmission Date: 20080115
  Serious: Yes (Hospitalization, Other)
  Sender: FDA-Public Use
  Company Number: HQWYE086111SEP07

PATIENT
  Sex: Female

DRUGS (8)
  1. SIROLIMUS [Suspect]
     Indication: PROPHYLAXIS AGAINST TRANSPLANT REJECTION
     Route: 048
     Dates: start: 20060608
  2. PREDNISONE TAB [Concomitant]
     Indication: PROPHYLAXIS AGAINST TRANSPLANT REJECTION
     Route: 048
     Dates: start: 20060607
  3. LASIX [Concomitant]
     Dosage: UNSPECIFIED
     Dates: start: 20061212
  4. VALCYTE [Concomitant]
     Dosage: UNSPECIFIED
     Dates: start: 20060420
  5. ASPIRIN [Concomitant]
     Dosage: UNSPECIFIED
     Dates: start: 20060422
  6. NEXIUM [Concomitant]
     Dosage: UNSPECIFIED
     Dates: start: 20060420
  7. MYCOPHENOLATE MOFETIL [Concomitant]
     Indication: PROPHYLAXIS AGAINST TRANSPLANT REJECTION
     Route: 048
     Dates: start: 20060607
  8. SEPTRA [Concomitant]
     Dosage: UNSPECIFIED
     Dates: start: 20060420

REACTIONS (2)
  - HEPATIC ENZYME INCREASED [None]
  - LIVER TRANSPLANT REJECTION [None]
